FAERS Safety Report 13661031 (Version 1)
Quarter: 2017Q2

REPORT INFORMATION
  Report Type: Spontaneous
  Country: AT (occurrence: AT)
  Receive Date: 20170616
  Receipt Date: 20170616
  Transmission Date: 20170830
  Serious: Yes (Other)
  Sender: FDA-Public Use
  Company Number: PHHY2017AT084695

PATIENT
  Age: 47 Year
  Sex: Female

DRUGS (1)
  1. AMIODARONE [Suspect]
     Active Substance: AMIODARONE
     Indication: PRODUCT USED FOR UNKNOWN INDICATION
     Dosage: UNK
     Route: 065
     Dates: start: 2007

REACTIONS (4)
  - Hypothyroidism [Recovered/Resolved]
  - Hyperthyroidism [Recovered/Resolved]
  - Thyroiditis [Unknown]
  - Tremor [Unknown]
